FAERS Safety Report 9375922 (Version 3)
Quarter: 2013Q3

REPORT INFORMATION
  Report Type: Spontaneous
  Country: JP (occurrence: JP)
  Receive Date: 20130628
  Receipt Date: 20130828
  Transmission Date: 20140515
  Serious: Yes (Other)
  Sender: FDA-Public Use
  Company Number: JP-ABBOTT-06P-087-0339386-00

PATIENT
  Age: 19 Year
  Sex: Male
  Weight: 55 kg

DRUGS (5)
  1. NORVIR SOFT GELATIN CAPSULES [Suspect]
     Indication: HIV INFECTION
     Route: 048
     Dates: start: 20060120, end: 20110506
  2. NORVIR SOFT GELATIN CAPSULES [Suspect]
     Dates: start: 20110507
  3. LEXIVA [Suspect]
     Indication: HIV INFECTION
     Route: 048
     Dates: start: 20060121
  4. TRUVADA [Suspect]
     Indication: HIV INFECTION
     Route: 048
     Dates: start: 20060120
  5. EFAVIRENZ [Concomitant]
     Indication: HIV INFECTION
     Route: 048
     Dates: start: 20060120, end: 20060120

REACTIONS (6)
  - Urethritis chlamydial [Recovered/Resolved]
  - Liver disorder [Not Recovered/Not Resolved]
  - Hypertriglyceridaemia [Recovered/Resolved]
  - Gastritis [Unknown]
  - Diarrhoea [Unknown]
  - Dermatitis allergic [Unknown]
